FAERS Safety Report 21515439 (Version 1)
Quarter: 2022Q4

REPORT INFORMATION
  Report Type: Other
  Country: US (occurrence: None)
  Receive Date: 20221027
  Receipt Date: 20221027
  Transmission Date: 20230113
  Serious: Yes (Hospitalization, Other)
  Sender: FDA-Public Use
  Company Number: US-ROCHE-3205886

PATIENT
  Age: 34 Year
  Sex: Female

DRUGS (1)
  1. OCREVUS [Suspect]
     Active Substance: OCRELIZUMAB
     Indication: Relapsing multiple sclerosis
     Dosage: 300 MG IV TWO WEEKS APART, 600MG IV 6 MONTHS
     Route: 042
     Dates: start: 20220204

REACTIONS (5)
  - COVID-19 [Unknown]
  - Relapsing fever [Unknown]
  - Infection [Unknown]
  - Granuloma [Unknown]
  - Clinically isolated syndrome [Unknown]

NARRATIVE: CASE EVENT DATE: 20220301
